FAERS Safety Report 5971476-3 (Version None)
Quarter: 2008Q4

REPORT INFORMATION
  Report Type: 
  Country: None (occurrence: None)
  Receive Date: 20081201
  Receipt Date: 20081119
  Transmission Date: 20090506
  Serious: Yes (Other)
  Sender: FDA-Public Use
  Company Number: US-JNJFOC-20081105038

PATIENT
  Age: 66 Year
  Sex: Female

DRUGS (8)
  1. REMICADE [Suspect]
     Indication: RHEUMATOID ARTHRITIS
     Route: 042
  2. COUMADIN [Concomitant]
  3. NORVASC [Concomitant]
  4. FOLIC ACID [Concomitant]
  5. DIOVAN [Concomitant]
  6. ELAVIL [Concomitant]
  7. SYNTHROID [Concomitant]
  8. ACTONEL [Concomitant]

REACTIONS (1)
  - ATRIAL FIBRILLATION [None]
